FAERS Safety Report 5203671-5 (Version None)
Quarter: 2007Q1

REPORT INFORMATION
  Report Type: 
  Country: None (occurrence: None)
  Receive Date: 20070105
  Receipt Date: 20070105
  Transmission Date: 20070707
  Serious: Yes (Life-Threatening, Other)
  Sender: FDA-Public Use
  Company Number: None

PATIENT
  Age: 50 Year
  Sex: Male
  Weight: 111.1313 kg

DRUGS (1)
  1. MORPHINE [Suspect]

REACTIONS (16)
  - ANURIA [None]
  - CARDIO-RESPIRATORY ARREST [None]
  - COLD SWEAT [None]
  - COUGH [None]
  - DEVICE MALFUNCTION [None]
  - DISTURBANCE IN ATTENTION [None]
  - DYSPNOEA [None]
  - FAECAL INCONTINENCE [None]
  - INCORRECT DOSE ADMINISTERED [None]
  - LOSS OF CONSCIOUSNESS [None]
  - MEDICATION ERROR [None]
  - MEMORY IMPAIRMENT [None]
  - MUSCLE SPASMS [None]
  - RESPIRATORY ARREST [None]
  - SOMNOLENCE [None]
  - URINARY INCONTINENCE [None]
